FAERS Safety Report 16256859 (Version 5)
Quarter: 2019Q4

REPORT INFORMATION
  Report Type: Spontaneous
  Country: ES (occurrence: ES)
  Receive Date: 20190430
  Receipt Date: 20191114
  Transmission Date: 20200122
  Serious: Yes (Other)
  Sender: FDA-Public Use
  Company Number: ES-MYLANLABS-2019M1040371

PATIENT
  Age: 16 Year
  Sex: Male

DRUGS (14)
  1. CANESTEN [Interacting]
     Active Substance: CLOTRIMAZOLE
     Indication: FUNGAL INFECTION
     Dosage: UNK
     Dates: start: 20181013, end: 20181027
  2. ROSUVASTATIN. [Suspect]
     Active Substance: ROSUVASTATIN
     Indication: PRODUCT USED FOR UNKNOWN INDICATION
     Dosage: 5 MILLIGRAM
     Route: 048
     Dates: start: 20181026
  3. LOJUXTA [Suspect]
     Active Substance: LOMITAPIDE MESYLATE
     Dosage: UNK
     Route: 048
  4. LOJUXTA [Suspect]
     Active Substance: LOMITAPIDE MESYLATE
     Dosage: 30 MILLIGRAM
     Route: 048
     Dates: end: 20181108
  5. EZETIMIBE. [Suspect]
     Active Substance: EZETIMIBE
     Indication: PRODUCT USED FOR UNKNOWN INDICATION
     Dosage: 10 MILLIGRAM, QD
  6. LOJUXTA [Suspect]
     Active Substance: LOMITAPIDE MESYLATE
     Dosage: 30 MILLIGRAM
     Route: 048
     Dates: start: 2018
  7. LOJUXTA [Suspect]
     Active Substance: LOMITAPIDE MESYLATE
     Dosage: 40 MILLIGRAM
     Route: 048
     Dates: end: 20181130
  8. ROSUVASTATIN. [Interacting]
     Active Substance: ROSUVASTATIN
     Dosage: 5 MILLIGRAM, QOD
     Route: 048
     Dates: end: 20181019
  9. EZETIMIBE. [Suspect]
     Active Substance: EZETIMIBE
     Dosage: UNK
  10. LOJUXTA [Suspect]
     Active Substance: LOMITAPIDE MESYLATE
     Indication: TYPE IIA HYPERLIPIDAEMIA
     Dosage: 30 MILLIGRAM
     Route: 048
     Dates: start: 20181026
  11. LOJUXTA [Suspect]
     Active Substance: LOMITAPIDE MESYLATE
     Dosage: 60 MILLIGRAM
     Route: 048
     Dates: start: 20181025
  12. LOJUXTA [Suspect]
     Active Substance: LOMITAPIDE MESYLATE
     Dosage: 30 MILLIGRAM
     Route: 048
     Dates: start: 20181108, end: 20181111
  13. LOJUXTA [Suspect]
     Active Substance: LOMITAPIDE MESYLATE
     Dosage: 40 MILLIGRAM
     Route: 048
     Dates: start: 20181026
  14. LOJUXTA [Suspect]
     Active Substance: LOMITAPIDE MESYLATE
     Dosage: 60 MILLIGRAM
     Route: 048
     Dates: start: 20181214

REACTIONS (6)
  - Drug interaction [Unknown]
  - Potentiating drug interaction [Unknown]
  - Liver function test increased [Recovered/Resolved]
  - Blood test abnormal [Unknown]
  - Fungal infection [Unknown]
  - Product administered to patient of inappropriate age [Unknown]

NARRATIVE: CASE EVENT DATE: 201809
